FAERS Safety Report 12248932 (Version 1)
Quarter: 2016Q2

REPORT INFORMATION
  Report Type: Spontaneous
  Country: US (occurrence: US)
  Receive Date: 20160408
  Receipt Date: 20160408
  Transmission Date: 20160815
  Serious: Yes (Hospitalization)
  Sender: FDA-Public Use
  Company Number: US-PERRIGO-16US014623

PATIENT
  Age: 26 Year
  Sex: Male

DRUGS (2)
  1. LOPERAMIDE HYDROCHLORIDE. [Suspect]
     Active Substance: LOPERAMIDE HYDROCHLORIDE
     Indication: DIARRHOEA
     Dosage: UNKNOWN, UNKNOWN
     Route: 048
  2. LOPERAMIDE HYDROCHLORIDE. [Suspect]
     Active Substance: LOPERAMIDE HYDROCHLORIDE
     Indication: DRUG ABUSE
     Dosage: UP TO 192 MG, QD
     Route: 048

REACTIONS (10)
  - Sinus bradycardia [Recovered/Resolved]
  - Substance abuse [Recovered/Resolved]
  - Dyspnoea [Recovered/Resolved]
  - Loss of consciousness [Recovered/Resolved]
  - Lethargy [Recovered/Resolved]
  - Hyperhidrosis [Recovered/Resolved]
  - Ventricular tachycardia [Recovered/Resolved]
  - Torsade de pointes [Recovered/Resolved]
  - Cardiac arrest [Recovered/Resolved]
  - Overdose [Recovered/Resolved]
